FAERS Safety Report 7518277-2 (Version None)
Quarter: 2011Q2

REPORT INFORMATION
  Report Type: 
  Country: None (occurrence: None)
  Receive Date: 20110602
  Receipt Date: 20110526
  Transmission Date: 20111010
  Serious: Yes (Hospitalization, Other)
  Sender: FDA-Public Use
  Company Number: DE-AMGEN-DEUSP2011022502

PATIENT
  Age: 71 Year
  Sex: Female

DRUGS (2)
  1. NPLATE [Suspect]
     Indication: IDIOPATHIC THROMBOCYTOPENIC PURPURA
     Dosage: 350 A?G, QWK
     Dates: start: 20100723, end: 20110504
  2. DEXAMETHASONE [Concomitant]
     Dosage: 8 MG, UNK
     Route: 042
     Dates: start: 20110329

REACTIONS (4)
  - THROMBOCYTOPENIA [None]
  - PARAPLEGIA [None]
  - THERAPEUTIC RESPONSE DECREASED [None]
  - B-CELL LYMPHOMA [None]
